FAERS Safety Report 4941588-1 (Version None)
Quarter: 2006Q1

REPORT INFORMATION
  Report Type: 
  Country: None (occurrence: None)
  Receive Date: 20060313
  Receipt Date: 20060301
  Transmission Date: 20060701
  Serious: Yes (Hospitalization)
  Sender: FDA-Public Use
  Company Number: GB-AVENTIS-200612065GDDC

PATIENT
  Age: 28 Year
  Sex: Female
  Weight: 62 kg

DRUGS (2)
  1. OFLOXACIN [Suspect]
     Indication: PELVIC INFECTION
     Route: 048
     Dates: start: 20060204, end: 20060214
  2. METRONIDAZOLE [Suspect]
     Indication: PELVIC INFECTION
     Route: 048
     Dates: start: 20060204, end: 20060214

REACTIONS (8)
  - ANOREXIA [None]
  - ARTHRALGIA [None]
  - HEART RATE INCREASED [None]
  - HYPOAESTHESIA [None]
  - JOINT SWELLING [None]
  - NAUSEA [None]
  - PALPITATIONS [None]
  - SWELLING [None]
